FAERS Safety Report 5599504-8 (Version None)
Quarter: 2008Q1

REPORT INFORMATION
  Report Type: 
  Country: None (occurrence: None)
  Receive Date: 20080123
  Receipt Date: 20080114
  Transmission Date: 20080703
  Serious: Yes (Life-Threatening, Hospitalization, Other)
  Sender: FDA-Public Use
  Company Number: US-BAYER-200811191NA

PATIENT
  Sex: Female

DRUGS (1)
  1. AVELOX [Suspect]
     Indication: INFECTION
     Dosage: AS USED: 400 MG  UNIT DOSE: 400 MG
     Route: 048
     Dates: start: 20050206

REACTIONS (7)
  - ATRIAL FIBRILLATION [None]
  - CARDIOMEGALY [None]
  - DRUG HYPERSENSITIVITY [None]
  - DYSPNOEA [None]
  - MEMORY IMPAIRMENT [None]
  - MYOCARDIAL INFARCTION [None]
  - NERVOUS SYSTEM DISORDER [None]
